FAERS Safety Report 9912940 (Version 1)
Quarter: 2014Q1

REPORT INFORMATION
  Report Type: Spontaneous
  Country: IT (occurrence: None)
  Receive Date: 20140212
  Receipt Date: 20140212
  Transmission Date: 20141002
  Serious: Yes (Hospitalization, Other)
  Sender: FDA-Public Use
  Company Number: 2013AP007401

PATIENT
  Age: 53 Year
  Sex: Female

DRUGS (5)
  1. QUETIAPINE (QUETIAPINE) [Suspect]
     Indication: INTENTIONAL SELF-INJURY
     Route: 048
     Dates: start: 20130730, end: 20130730
  2. SERTRALINE (SERTRALINE) [Suspect]
     Indication: INTENTIONAL SELF-INJURY
     Route: 048
     Dates: start: 20130730, end: 20130730
  3. DELORAZEPAM (DELORAZEPAM) [Suspect]
     Indication: INTENTIONAL SELF-INJURY
     Route: 048
     Dates: start: 20130730, end: 20130730
  4. MIRTAZAPINE (MIRTAZAPINE) [Suspect]
     Indication: INTENTIONAL SELF-INJURY
     Route: 048
     Dates: start: 20130730, end: 20130730
  5. PREGABALIN (PREGABALIN) [Suspect]
     Indication: INTENTIONAL SELF-INJURY
     Route: 048
     Dates: start: 20130730, end: 20130730

REACTIONS (3)
  - Electrocardiogram QT prolonged [None]
  - Toxicity to various agents [None]
  - Cardiotoxicity [None]
